FAERS Safety Report 17743072 (Version 1)
Quarter: 2020Q2

REPORT INFORMATION
  Report Type: Spontaneous
  Country: DE (occurrence: DE)
  Receive Date: 20200504
  Receipt Date: 20200504
  Transmission Date: 20200714
  Serious: Yes (Congenital Anomaly, Other)
  Sender: FDA-Public Use
  Company Number: DE-MYLANLABS-2020M1043206

PATIENT
  Age: 1 Day
  Sex: Male
  Weight: 3.82 kg

DRUGS (3)
  1. FOLIC ACID. [Concomitant]
     Active Substance: FOLIC ACID
     Indication: PROPHYLAXIS OF NEURAL TUBE DEFECT
     Dosage: 0.6 [MG/D ]
     Route: 064
     Dates: start: 20181012, end: 20190722
  2. AMPICILLIN [Concomitant]
     Active Substance: AMPICILLIN
     Indication: PRODUCT USED FOR UNKNOWN INDICATION
     Dosage: 2 [G/D ]
     Route: 064
     Dates: start: 20190722, end: 20190722
  3. LAMOTRIGINE. [Suspect]
     Active Substance: LAMOTRIGINE
     Indication: DEPRESSION
     Dosage: 100 [MG/D ]/ NO DOSE ADJUSTMENT IN PREGNANCY DESPITE DECREASING SERUM CONCENTRATIONS
     Route: 064
     Dates: start: 20181012, end: 20190722

REACTIONS (5)
  - Ventricular septal defect [Unknown]
  - Atrial septal defect [Unknown]
  - Myoclonus [Unknown]
  - Foetal exposure during pregnancy [Recovered/Resolved]
  - Developmental hip dysplasia [Unknown]

NARRATIVE: CASE EVENT DATE: 20190722
